FAERS Safety Report 7403041-5 (Version None)
Quarter: 2011Q2

REPORT INFORMATION
  Report Type: 
  Country: None (occurrence: None)
  Receive Date: 20110408
  Receipt Date: 20110221
  Transmission Date: 20111010
  Serious: No
  Sender: FDA-Public Use
  Company Number: US-NOVEN-11US001855

PATIENT
  Age: 48 Year
  Sex: Male

DRUGS (1)
  1. FENTANYL [Suspect]
     Indication: PAIN
     Dosage: 50 UG, Q 72 HOURS
     Route: 062
     Dates: start: 20110216

REACTIONS (4)
  - NAUSEA [None]
  - VOMITING [None]
  - SEDATION [None]
  - DRUG EFFECT INCREASED [None]
